FAERS Safety Report 5301554-3 (Version None)
Quarter: 2007Q2

REPORT INFORMATION
  Report Type: 
  Country: None (occurrence: None)
  Receive Date: 20070412
  Receipt Date: 20070402
  Transmission Date: 20071010
  Serious: Yes (Other)
  Sender: FDA-Public Use
  Company Number: GXKR2007GB03107

PATIENT
  Age: 54 Year
  Sex: Male
  Weight: 113 kg

DRUGS (12)
  1. KETOPROFEN [Suspect]
     Indication: PREMEDICATION
     Dosage: 100 MG, ONCE/SINGLE, ORAL
     Route: 048
     Dates: start: 20070222, end: 20070222
  2. RANITIDINE [Suspect]
     Dosage: 150 MG, ORAL
     Route: 048
  3. DEXAMETHASONE TAB [Suspect]
     Dosage: 4 MG, ONCE/SINGLE, INTRAVENOUS
     Route: 042
     Dates: start: 20070222
  4. MIDAZOLAM HCL [Suspect]
     Dosage: 1 MG, ONCE/SINGLE, INTRAVENOUS
     Route: 042
     Dates: start: 20070222
  5. OXYGEN(OXYGEN) [Suspect]
     Dates: start: 20070222
  6. PROPOFOL [Suspect]
     Dosage: 1 DF,  ONCE/SINGLE, INTRAVENOUS
     Route: 042
     Dates: start: 20070222
  7. REMIFENTANIL(REMIFENTANIL) [Suspect]
     Dosage: 1DF, ONCE/SINGLE, INTRAVENOUS
     Route: 042
     Dates: start: 20070222
  8. TRAMADOL HCL [Suspect]
     Indication: PERIOPERATIVE ANALGESIA
     Dosage: 100 MG, ONCE/SINGLE, INTRAVENOUS
     Route: 042
     Dates: start: 20070222, end: 20070222
  9. CHLORPHENIRAMINE TAB [Concomitant]
  10. FELODIPINE [Concomitant]
  11. IBUPROFEN [Concomitant]
  12. ACETAMINOPHEN [Concomitant]

REACTIONS (5)
  - ANAESTHETIC COMPLICATION [None]
  - DIARRHOEA [None]
  - PO2 DECREASED [None]
  - PROCEDURAL HYPOTENSION [None]
  - PROCEDURAL VOMITING [None]
